FAERS Safety Report 19442172 (Version 2)
Quarter: 2021Q3

REPORT INFORMATION
  Report Type: Report from Study
  Country: US (occurrence: US)
  Receive Date: 20210621
  Receipt Date: 20210720
  Transmission Date: 20211014
  Serious: Yes (Other)
  Sender: FDA-Public Use
  Company Number: US-UCBSA-2021028498

PATIENT
  Sex: Female

DRUGS (2)
  1. LACOSAMIDE. [Suspect]
     Active Substance: LACOSAMIDE
     Dosage: DOSE INCREASED TO 150 MG (CUTTING 200MG PILLS IN HALF UNTIL RECEIVE CORRECT DOSAGE OF 150MG)
     Dates: start: 2021
  2. LACOSAMIDE. [Suspect]
     Active Substance: LACOSAMIDE
     Indication: SEIZURE
     Dosage: 100 MILLIGRAM, 2X/DAY (BID)
     Dates: start: 202105, end: 20210608

REACTIONS (3)
  - Wrong technique in product usage process [Unknown]
  - Petit mal epilepsy [Recovered/Resolved]
  - Drug ineffective [Unknown]
